FAERS Safety Report 5918535-9 (Version None)
Quarter: 2008Q4

REPORT INFORMATION
  Report Type: 
  Country: None (occurrence: None)
  Receive Date: 20081015
  Receipt Date: 20081003
  Transmission Date: 20090506
  Serious: No
  Sender: FDA-Public Use
  Company Number: JP-BRACCO-000961

PATIENT
  Sex: Male
  Weight: 56 kg

DRUGS (24)
  1. PROHANCE [Suspect]
     Indication: NUCLEAR MAGNETIC RESONANCE IMAGING BRAIN
     Route: 042
     Dates: start: 20080717, end: 20080717
  2. MEGLUMINE GADOPENTETATE [Suspect]
     Indication: DIAGNOSTIC PROCEDURE
     Route: 042
     Dates: start: 20080729, end: 20080729
  3. MEGLUMINE GADOPENTETATE [Suspect]
     Indication: METASTASES TO LYMPH NODES
     Route: 042
     Dates: start: 20080729, end: 20080729
  4. FLOMOX [Concomitant]
     Route: 048
     Dates: start: 20080709, end: 20080711
  5. LOXONIN [Concomitant]
     Route: 048
     Dates: start: 20080709, end: 20080711
  6. DIGOXIN                            /00017701/ [Concomitant]
     Route: 048
     Dates: start: 20080601, end: 20080730
  7. WARFARIN SODIUM [Concomitant]
     Route: 048
     Dates: end: 20080729
  8. CELESTAMINE                        /00252801/ [Concomitant]
     Route: 048
     Dates: end: 20080729
  9. SELBEX [Concomitant]
     Route: 048
     Dates: end: 20080729
  10. ALLELOCK [Concomitant]
     Route: 048
     Dates: start: 20080712, end: 20080729
  11. LENDORMIN [Concomitant]
     Route: 048
     Dates: start: 20080715, end: 20080729
  12. LENDORMIN [Concomitant]
     Route: 048
     Dates: start: 20080801, end: 20080812
  13. ATARAX [Concomitant]
     Route: 048
     Dates: start: 20080716, end: 20080729
  14. ATARAX [Concomitant]
     Route: 048
     Dates: start: 20080801, end: 20080812
  15. ADALAT [Concomitant]
     Route: 048
     Dates: start: 20080801, end: 20080812
  16. OMEPRAZOLE [Concomitant]
     Route: 048
     Dates: start: 20080808, end: 20080816
  17. OMEPRAZOLE [Concomitant]
     Route: 065
     Dates: start: 20080802, end: 20080807
  18. LASIX [Concomitant]
     Route: 042
     Dates: start: 20080730
  19. STRONG NEO-MINOPHAGEN C [Concomitant]
     Route: 065
     Dates: start: 20080709, end: 20080728
  20. NEUROTROPIN [Concomitant]
     Route: 065
     Dates: start: 20080709, end: 20080728
  21. UNASYN ORAL                        /00903601/ [Concomitant]
     Route: 048
     Dates: start: 20080802, end: 20080806
  22. ANTEBATE [Concomitant]
     Route: 065
  23. ZEFNART [Concomitant]
  24. PYRAZOLONES [Concomitant]
     Route: 065

REACTIONS (3)
  - METASTASES TO LYMPH NODES [None]
  - RENAL FAILURE ACUTE [None]
  - STASIS DERMATITIS [None]
